FAERS Safety Report 8993630 (Version 2)
Quarter: 2013Q1

REPORT INFORMATION
  Report Type: Spontaneous
  Country: IT (occurrence: IT)
  Receive Date: 20130102
  Receipt Date: 20130103
  Transmission Date: 20140127
  Serious: Yes (Other)
  Sender: FDA-Public Use
  Company Number: PHHY2012IT118521

PATIENT
  Age: 44 Year
  Sex: Female

DRUGS (8)
  1. TOBI PODHALER [Suspect]
     Indication: PSEUDOMONAS INFECTION
     Dosage: 8 U, POS.
     Dates: start: 20120920, end: 20121120
  2. ZITROMAX [Concomitant]
     Dosage: 1 U, POS.
  3. SERETIDE [Concomitant]
     Dosage: 2 U, POS.
     Dates: start: 20120829
  4. LANTUS [Concomitant]
     Dosage: 28 IU, UNK
     Route: 058
     Dates: start: 20120630
  5. CREON [Concomitant]
     Dates: start: 20040905
  6. SALBUTAMOL [Concomitant]
     Dosage: 2 U, POS.
     Dates: start: 20020125
  7. EPHYNAL [Concomitant]
     Dosage: 1 U, POS.
     Dates: start: 20090504
  8. IDROPLURIVIT [Concomitant]
     Dates: start: 20090504

REACTIONS (1)
  - Dyspnoea [Recovered/Resolved]
